FAERS Safety Report 5251431-1 (Version None)
Quarter: 2007Q1

REPORT INFORMATION
  Report Type: 
  Country: None (occurrence: None)
  Receive Date: 20070228
  Receipt Date: 20060508
  Transmission Date: 20070707
  Serious: No
  Sender: FDA-Public Use
  Company Number: US-GLAXOSMITHKLINE-A0604714A

PATIENT
  Age: 58 Year
  Sex: Female

DRUGS (7)
  1. LAMICTAL [Suspect]
     Indication: DRUG USE FOR UNKNOWN INDICATION
     Dosage: 25MG THREE TIMES PER DAY
     Route: 048
     Dates: start: 20060311
  2. HYDROCHLOROTHIAZIDE [Concomitant]
  3. ATENOL [Concomitant]
  4. LISINOPRIL [Concomitant]
  5. MECLIZINE [Concomitant]
  6. LOVASTATIN [Concomitant]
  7. UNKNOWN MEDICATION [Concomitant]

REACTIONS (3)
  - MIGRAINE [None]
  - THERAPEUTIC RESPONSE UNEXPECTED [None]
  - VERTIGO [None]
